FAERS Safety Report 8313128-0 (Version None)
Quarter: 2012Q2

REPORT INFORMATION
  Report Type: 
  Country: None (occurrence: None)
  Receive Date: 20120426
  Receipt Date: 20120424
  Transmission Date: 20120825
  Serious: Yes (Death)
  Sender: FDA-Public Use
  Company Number: US-PFIZER INC-2012101611

PATIENT
  Sex: Female

DRUGS (3)
  1. ZOLOFT [Concomitant]
     Dosage: UNK
  2. NEURONTIN [Suspect]
     Indication: PAIN
     Dosage: 300 MG, 3X/DAY
     Route: 048
  3. ARTHROTEC [Concomitant]
     Dosage: UNK

REACTIONS (1)
  - NEOPLASM MALIGNANT [None]
